FAERS Safety Report 25860386 (Version 1)
Quarter: 2025Q3

REPORT INFORMATION
  Report Type: Spontaneous
  Country: US (occurrence: None)
  Receive Date: 20250928
  Receipt Date: 20250928
  Transmission Date: 20251020
  Serious: Yes (Other)
  Sender: FDA-CTU
  Company Number: None

PATIENT
  Age: 30 Year
  Sex: Female
  Weight: 92.25 kg

DRUGS (7)
  1. KEPPRA [Suspect]
     Active Substance: LEVETIRACETAM
     Dates: start: 20250917, end: 20250926
  2. 7-HYDROXYMITRAGYNINE [Suspect]
     Active Substance: 7-HYDROXYMITRAGYNINE
  3. CLONAZEPAM [Suspect]
     Active Substance: CLONAZEPAM
  4. SUBUTEX [Suspect]
     Active Substance: BUPRENORPHINE HYDROCHLORIDE
  5. ATIVAN [Suspect]
     Active Substance: LORAZEPAM
  6. PROPANOL (PROPRANOLOL HYDROCHLORIDE) [Concomitant]
     Active Substance: PROPRANOLOL HYDROCHLORIDE
  7. PEPCID [Concomitant]
     Active Substance: FAMOTIDINE

REACTIONS (10)
  - Skin exfoliation [None]
  - Skin burning sensation [None]
  - Chest pain [None]
  - Swelling face [None]
  - Swelling [None]
  - Anger [None]
  - Hyperhidrosis [None]
  - Anxiety [None]
  - Irritability [None]
  - Product use issue [None]

NARRATIVE: CASE EVENT DATE: 20250926
